FAERS Safety Report 24215825 (Version 3)
Quarter: 2024Q3

REPORT INFORMATION
  Report Type: Spontaneous
  Country: GB (occurrence: GB)
  Receive Date: 20240816
  Receipt Date: 20240921
  Transmission Date: 20241016
  Serious: Yes (Other)
  Sender: CELLTRION
  Company Number: GB-CELLTRION INC.-2024GB013073

PATIENT

DRUGS (2)
  1. YUFLYMA [Suspect]
     Active Substance: ADALIMUMAB-AATY
     Indication: Psoriatic arthropathy
     Dosage: 40 MG PEN PK2 EVERY 2 WEEKS
     Route: 058
     Dates: start: 202401
  2. YUFLYMA [Suspect]
     Active Substance: ADALIMUMAB-AATY
     Dosage: 40 MG PEN PK2 EVERY 2 WEEKS
     Route: 058
     Dates: start: 20240718

REACTIONS (6)
  - Dementia Alzheimer^s type [Unknown]
  - Device physical property issue [Unknown]
  - Device malfunction [Unknown]
  - Device breakage [Unknown]
  - Product use issue [Unknown]
  - Drug dose omission by device [Unknown]

NARRATIVE: CASE EVENT DATE: 20240802
